FAERS Safety Report 5447836-6 (Version None)
Quarter: 2007Q3

REPORT INFORMATION
  Report Type: 
  Country: None (occurrence: None)
  Receive Date: 20070910
  Receipt Date: 20070829
  Transmission Date: 20080115
  Serious: Yes (Other)
  Sender: FDA-Public Use
  Company Number: BE-ELI_LILLY_AND_COMPANY-BE200708006370

PATIENT
  Age: 15 Year
  Sex: Male
  Weight: 65 kg

DRUGS (3)
  1. STRATTERA [Suspect]
     Dosage: 60 MG, DAILY (1/D)
     Route: 048
     Dates: start: 20070101, end: 20070101
  2. STRATTERA [Suspect]
     Dosage: 10 MG, DAILY (1/D)
     Route: 048
     Dates: start: 20070601, end: 20070101
  3. STRATTERA [Suspect]
     Dosage: 50 MG, DAILY (1/D)
     Route: 048
     Dates: start: 20070101

REACTIONS (2)
  - ARRHYTHMIA [None]
  - TACHYCARDIA [None]
